FAERS Safety Report 16904655 (Version 1)
Quarter: 2019Q4

REPORT INFORMATION
  Report Type: Spontaneous
  Country: US (occurrence: US)
  Receive Date: 20190819
  Receipt Date: 20190819
  Transmission Date: 20200122
  Serious: Yes (Hospitalization)
  Sender: FDA-Public Use
  Company Number: None

PATIENT
  Age: 51 Year
  Sex: Female

DRUGS (1)
  1. AMBRISENTAN 10MG TABLETS 30/BO: 10MG [Suspect]
     Active Substance: AMBRISENTAN
     Indication: CONGENITAL HEARING DISORDER
     Route: 048
     Dates: start: 20181026

REACTIONS (3)
  - Weight increased [None]
  - Pulmonary hypertension [None]
  - Fluid retention [None]

NARRATIVE: CASE EVENT DATE: 20190811
